FAERS Safety Report 13213602 (Version 1)
Quarter: 2017Q1

REPORT INFORMATION
  Report Type: Spontaneous
  Country: US (occurrence: US)
  Receive Date: 20170209
  Receipt Date: 20170209
  Transmission Date: 20170428
  Serious: No
  Sender: FDA-Public Use
  Company Number: US-ALLERGAN-1664915US

PATIENT
  Sex: Female

DRUGS (1)
  1. BOTOX COSMETIC [Suspect]
     Active Substance: ONABOTULINUMTOXINA
     Indication: SKIN WRINKLING
     Dosage: UNK
     Route: 030
     Dates: start: 20160726, end: 20160726

REACTIONS (6)
  - Vision blurred [Not Recovered/Not Resolved]
  - Lagophthalmos [Not Recovered/Not Resolved]
  - Facial paresis [Not Recovered/Not Resolved]
  - Skin tightness [Not Recovered/Not Resolved]
  - Dizziness [Not Recovered/Not Resolved]
  - Fatigue [Not Recovered/Not Resolved]
